FAERS Safety Report 8695751 (Version 2)
Quarter: 2013Q4

REPORT INFORMATION
  Report Type: Spontaneous
  Country: US (occurrence: US)
  Receive Date: 20120731
  Receipt Date: 20131106
  Transmission Date: 20140711
  Serious: Yes (Other)
  Sender: FDA-Public Use
  Company Number: US-009507513-1207USA010606

PATIENT
  Age: 62 Year
  Sex: Female

DRUGS (6)
  1. ZOCOR [Suspect]
     Dosage: 20 MG, QD
     Route: 048
  2. DETROL [Suspect]
     Dosage: UNK, BID
     Route: 048
  3. PREMARIN [Suspect]
     Dosage: 0.6 MG, UNK
     Route: 048
  4. DETROL LA [Suspect]
     Route: 048
  5. LIPITOR [Suspect]
     Dosage: 10 MG, QD
     Route: 048
  6. ATENOLOL (+) HYDROCHLOROTHIAZIDE [Concomitant]

REACTIONS (2)
  - Drug ineffective [Unknown]
  - Bladder disorder [Unknown]
